FAERS Safety Report 26094039 (Version 1)
Quarter: 2025Q4

REPORT INFORMATION
  Report Type: Spontaneous
  Country: EU (occurrence: EU)
  Receive Date: 20251126
  Receipt Date: 20251126
  Transmission Date: 20260119
  Serious: Yes (Other)
  Sender: MYLAN
  Company Number: None

PATIENT
  Age: 68 Year
  Sex: Male
  Weight: 120 kg

DRUGS (5)
  1. FENTANYL [Suspect]
     Active Substance: FENTANYL
     Indication: Pain
     Dosage: 1 DOSAGE FORM, Q3D (1 IN 3 DAYS)
     Dates: start: 20250112
  2. PREGABALIN [Suspect]
     Active Substance: PREGABALIN
     Indication: Neuralgia
     Dosage: 75 MILLIGRAM, BID (2 X 1 PIECE)
     Dates: start: 20251102
  3. PREGABALIN [Suspect]
     Active Substance: PREGABALIN
     Indication: Anxiety
  4. OXAZEPAM [Suspect]
     Active Substance: OXAZEPAM
     Indication: Stress
     Dosage: 20 MILLIGRAM, QD (1 X 2 TABLETS)
     Dates: start: 20251020
  5. FENTANYL [Suspect]
     Active Substance: FENTANYL
     Indication: Pain
     Dosage: 200 MICROGRAM (1 TO 3 TIMES A DAY 1 TABLET)

REACTIONS (8)
  - Hallucination [Not Recovered/Not Resolved]
  - Gait disturbance [Not Recovered/Not Resolved]
  - Memory impairment [Not Recovered/Not Resolved]
  - Dysarthria [Not Recovered/Not Resolved]
  - Coordination abnormal [Not Recovered/Not Resolved]
  - Confusional state [Not Recovered/Not Resolved]
  - Tremor [Not Recovered/Not Resolved]
  - Oedema peripheral [Not Recovered/Not Resolved]
